FAERS Safety Report 25135222 (Version 1)
Quarter: 2025Q1

REPORT INFORMATION
  Report Type: Spontaneous
  Country: JP (occurrence: JP)
  Receive Date: 20250328
  Receipt Date: 20250328
  Transmission Date: 20250409
  Serious: Yes (Death, Other)
  Sender: AMGEN
  Company Number: JP-AMGEN-JPNSP2025060376

PATIENT

DRUGS (1)
  1. BLINATUMOMAB [Suspect]
     Active Substance: BLINATUMOMAB
     Indication: B-cell type acute leukaemia
     Route: 065

REACTIONS (3)
  - Death [Fatal]
  - Venoocclusive liver disease [Unknown]
  - Acute lymphocytic leukaemia recurrent [Unknown]
